FAERS Safety Report 20610730 (Version 1)
Quarter: 2022Q1

REPORT INFORMATION
  Report Type: Spontaneous
  Country: US (occurrence: None)
  Receive Date: 20220317
  Receipt Date: 20220317
  Transmission Date: 20220423
  Serious: Yes (Other)
  Sender: FDA-Public Use
  Company Number: None

PATIENT
  Age: 64 Year
  Sex: Female
  Weight: 58.05 kg

DRUGS (2)
  1. EVUSHELD [Suspect]
     Active Substance: CILGAVIMAB\TIXAGEVIMAB
     Indication: Immune disorder prophylaxis
     Route: 030
     Dates: start: 20220315, end: 20220315
  2. Evusheld (cilgavimab) [Concomitant]
     Dates: start: 20220315, end: 20220315

REACTIONS (6)
  - Pain in extremity [None]
  - Injection site pain [None]
  - Gait disturbance [None]
  - Gait disturbance [None]
  - Thrombosis [None]
  - Haematoma [None]

NARRATIVE: CASE EVENT DATE: 20220317
